FAERS Safety Report 14759946 (Version 1)
Quarter: 2018Q2

REPORT INFORMATION
  Report Type: Spontaneous
  Country: US (occurrence: US)
  Receive Date: 20180413
  Receipt Date: 20180413
  Transmission Date: 20180711
  Serious: Yes (Other)
  Sender: FDA-Public Use
  Company Number: US-NEUROCRINE BIOSCIENCES INC.-2018NBI01024

PATIENT
  Age: 47 Year
  Sex: Female
  Weight: 88.08 kg

DRUGS (17)
  1. TOPIRAMATE. [Concomitant]
     Active Substance: TOPIRAMATE
  2. TOPIRAMATE. [Concomitant]
     Active Substance: TOPIRAMATE
  3. DEXILANT [Concomitant]
     Active Substance: DEXLANSOPRAZOLE
  4. VENTOLIN [Concomitant]
     Active Substance: ALBUTEROL SULFATE
  5. CLONAZEPAM. [Concomitant]
     Active Substance: CLONAZEPAM
  6. METFORMIN [Concomitant]
     Active Substance: METFORMIN HYDROCHLORIDE
  7. BENZTROPINE. [Concomitant]
     Active Substance: BENZTROPINE
  8. ADVAIR HFA [Concomitant]
     Active Substance: FLUTICASONE PROPIONATE\SALMETEROL XINAFOATE
     Dosage: 200
  9. FENOFIBRATE. [Concomitant]
     Active Substance: FENOFIBRATE
  10. INGREZZA [Suspect]
     Active Substance: VALBENAZINE
     Indication: TARDIVE DYSKINESIA
     Route: 048
     Dates: start: 20180316, end: 20180322
  11. INGREZZA [Suspect]
     Active Substance: VALBENAZINE
     Route: 048
     Dates: start: 20180323, end: 20180330
  12. CLONAZEPAM. [Concomitant]
     Active Substance: CLONAZEPAM
  13. SEROQUEL [Concomitant]
     Active Substance: QUETIAPINE FUMARATE
  14. LEVOCETIRIZINE [Concomitant]
     Active Substance: LEVOCETIRIZINE
  15. INGREZZA [Suspect]
     Active Substance: VALBENAZINE
     Route: 048
     Dates: start: 20180331
  16. RANITIDINE. [Concomitant]
     Active Substance: RANITIDINE
  17. NASONEX [Concomitant]
     Active Substance: MOMETASONE FUROATE

REACTIONS (10)
  - Somnolence [Unknown]
  - Feeling abnormal [Unknown]
  - Fatigue [Unknown]
  - Drooling [Unknown]
  - Musculoskeletal disorder [Unknown]
  - Fall [Unknown]
  - Facial paralysis [Unknown]
  - Reduced facial expression [Unknown]
  - Depressed level of consciousness [Unknown]
  - Diarrhoea [Unknown]

NARRATIVE: CASE EVENT DATE: 201803
